FAERS Safety Report 8354881-X (Version None)
Quarter: 2012Q2

REPORT INFORMATION
  Report Type: 
  Country: None (occurrence: None)
  Receive Date: 20120511
  Receipt Date: 20120501
  Transmission Date: 20120825
  Serious: Yes (Hospitalization)
  Sender: FDA-Public Use
  Company Number: CA-ROCHE-1065342

PATIENT
  Sex: Male
  Weight: 78.542 kg

DRUGS (11)
  1. CALCIUM [Concomitant]
  2. MULTI-VITAMIN [Concomitant]
  3. NORVASC [Concomitant]
     Indication: BLOOD PRESSURE
  4. PREDNISONE TAB [Concomitant]
     Indication: PREMEDICATION
     Route: 048
     Dates: start: 20110414, end: 20110414
  5. HYDROCHLOROTHIAZIDE [Concomitant]
     Indication: BLOOD PRESSURE
  6. DIPHENHYDRAMINE HCL [Concomitant]
     Indication: PREMEDICATION
     Route: 048
     Dates: start: 20110414, end: 20110414
  7. ACETAMINOPHEN [Concomitant]
     Indication: PREMEDICATION
     Route: 048
     Dates: start: 20110414, end: 20110414
  8. VITAMIN D [Concomitant]
  9. MABTHERA [Suspect]
     Indication: RHEUMATOID ARTHRITIS
     Route: 042
     Dates: start: 20090310
  10. METHOTREXATE [Concomitant]
  11. MAGNESIUM [Concomitant]

REACTIONS (1)
  - CARTILAGE ATROPHY [None]
